FAERS Safety Report 23538902 (Version 2)
Quarter: 2024Q1

REPORT INFORMATION
  Report Type: Spontaneous
  Country: GB (occurrence: GB)
  Receive Date: 20240219
  Receipt Date: 20240304
  Transmission Date: 20240410
  Serious: Yes (Hospitalization, Other)
  Sender: FDA-Public Use
  Company Number: None

PATIENT
  Age: 31 Year
  Sex: Female
  Weight: 69 kg

DRUGS (2)
  1. DOXYCYCLINE [Suspect]
     Active Substance: DOXYCYCLINE
     Indication: Sinusitis bacterial
     Dosage: 100 MG, 1X/DAY (100 MG ONCE DAILY/MORNING WITH FOOD, APART FROM 2X/DAY ON THE 1ST DAY)
     Dates: start: 20240207
  2. CONCERTA [Concomitant]
     Active Substance: METHYLPHENIDATE HYDROCHLORIDE
     Indication: Attention deficit hyperactivity disorder
     Dates: start: 20231222

REACTIONS (9)
  - Tremor [Recovered/Resolved]
  - White blood cell count increased [Unknown]
  - Vomiting [Recovered/Resolved]
  - Diarrhoea [Recovered/Resolved]
  - Insomnia [Recovered/Resolved]
  - Panic attack [Recovered/Resolved]
  - Malaise [Recovered/Resolved]
  - Faeces discoloured [Unknown]
  - Heart rate increased [Unknown]

NARRATIVE: CASE EVENT DATE: 20240207
